FAERS Safety Report 4560834-X (Version None)
Quarter: 2005Q1

REPORT INFORMATION
  Report Type: 
  Country: None (occurrence: None)
  Receive Date: 20050124
  Receipt Date: 20050114
  Transmission Date: 20050727
  Serious: Yes (Hospitalization)
  Sender: FDA-Public Use
  Company Number: HQWYE746001SEP04

PATIENT
  Age: 72 Year
  Sex: Male

DRUGS (7)
  1. EUPANTOL   (PANTOPRAZOLE) [Suspect]
     Dosage: 40 MG 1X PER 1 DAY
     Route: 042
     Dates: start: 20040811
  2. BURINEX [Suspect]
     Dosage: 2 MG 1X PER 1 DAY
     Route: 042
     Dates: start: 20040815, end: 20040815
  3. GENTAMICIN [Suspect]
     Dosage: 300 MG 1X PER 1 DAY
     Route: 042
     Dates: start: 20040811
  4. IMMUNE GLOBULIN INTRAVENOUS (HUMAN) [Suspect]
     Dosage: 70 MG 1X PER 24 HR
     Route: 042
     Dates: start: 20040813, end: 20040814
  5. RIFAMPICIN [Suspect]
     Dosage: 600 MG 1X PER 1 DAY
     Route: 042
     Dates: start: 20040811
  6. TARGOCID [Suspect]
     Dosage: 400 MG 1X PER 1 DAY
     Route: 042
     Dates: start: 20040811
  7. ORBENIN CAP [Concomitant]

REACTIONS (17)
  - ABSCESS [None]
  - ACUTE RESPIRATORY DISTRESS SYNDROME [None]
  - ANAEMIA [None]
  - AORTIC VALVE DISEASE [None]
  - DISSEMINATED INTRAVASCULAR COAGULATION [None]
  - DYSPNOEA [None]
  - EPISTAXIS [None]
  - GASTROINTESTINAL HAEMORRHAGE [None]
  - GENERAL PHYSICAL HEALTH DETERIORATION [None]
  - HAEMODIALYSIS [None]
  - HAEMORRHAGIC DISORDER [None]
  - IDIOPATHIC THROMBOCYTOPENIC PURPURA [None]
  - POLYNEUROPATHY [None]
  - POST PROCEDURAL COMPLICATION [None]
  - PYREXIA [None]
  - RENAL FAILURE ACUTE [None]
  - STAPHYLOCOCCAL INFECTION [None]
